FAERS Safety Report 12394205 (Version 2)
Quarter: 2016Q4

REPORT INFORMATION
  Report Type: Spontaneous
  Country: GB (occurrence: GB)
  Receive Date: 20160523
  Receipt Date: 20161103
  Transmission Date: 20170207
  Serious: Yes (Other)
  Sender: FDA-Public Use
  Company Number: GB-TEVA-660193ACC

PATIENT
  Age: 59 Year
  Sex: Female
  Weight: 60 kg

DRUGS (7)
  1. CARBOMER [Concomitant]
     Active Substance: CARBOMER
  2. OMEPRAZOLE. [Concomitant]
     Active Substance: OMEPRAZOLE
  3. METOCLOPRAMIDE. [Suspect]
     Active Substance: METOCLOPRAMIDE
     Indication: NAUSEA
     Dosage: 30 MILLIGRAM DAILY;
     Route: 048
     Dates: start: 201510, end: 20160427
  4. ALVERINE [Concomitant]
     Active Substance: ALVERINE
  5. MACROGOL [Concomitant]
     Active Substance: POLYETHYLENE GLYCOLS
  6. SALMETEROL [Concomitant]
     Active Substance: SALMETEROL
  7. PREMARIN [Concomitant]
     Active Substance: ESTROGENS, CONJUGATED

REACTIONS (8)
  - Breast enlargement [Recovered/Resolved]
  - Breast pain [Recovered/Resolved]
  - Sensitisation [Recovered/Resolved]
  - Nipple pain [Recovered/Resolved]
  - Breast swelling [Recovered/Resolved]
  - Nipple swelling [Recovered/Resolved]
  - Breast discomfort [Recovered/Resolved]
  - Breast induration [Recovered/Resolved]

NARRATIVE: CASE EVENT DATE: 20160423
